FAERS Safety Report 7141133-9 (Version None)
Quarter: 2010Q4

REPORT INFORMATION
  Report Type: 
  Country: None (occurrence: None)
  Receive Date: 20101207
  Receipt Date: 20090903
  Transmission Date: 20110411
  Serious: Yes (Other)
  Sender: FDA-Public Use
  Company Number: FR-CELGENEUS-056-21880-10081769

PATIENT
  Age: 45 Year
  Sex: Male

DRUGS (5)
  1. REVLIMID [Suspect]
     Indication: MULTIPLE MYELOMA
     Route: 048
     Dates: start: 20080124, end: 20081231
  2. VALACYCLOVIR HYDROCHLORIDE [Concomitant]
     Route: 065
  3. BACTRIM [Concomitant]
     Route: 065
  4. LEDERFOLINE [Concomitant]
     Route: 065
  5. RULID [Concomitant]
     Route: 065

REACTIONS (3)
  - GENERAL PHYSICAL CONDITION ABNORMAL [None]
  - PANCYTOPENIA [None]
  - PYREXIA [None]
